FAERS Safety Report 4393319-4 (Version None)
Quarter: 2004Q3

REPORT INFORMATION
  Report Type: 
  Country: None (occurrence: None)
  Receive Date: 20040701
  Receipt Date: 20040624
  Transmission Date: 20050211
  Serious: Yes (Hospitalization)
  Sender: FDA-Public Use
  Company Number: 2004IC000299

PATIENT
  Age: 61 Year
  Sex: Male

DRUGS (2)
  1. FLUOROURACIL [Suspect]
     Indication: GASTRIC CANCER
     Dosage: 2600 MG/M**2; WEEKLY; INTRAVENOUS
     Route: 042
  2. LEUCOVORIN (FOLINC ACID) [Suspect]
     Indication: GASTRIC CANCER
     Dosage: 300 MG/M**2; WEEKLY; INTRAVENOUS
     Route: 042

REACTIONS (4)
  - CONFUSIONAL STATE [None]
  - HYPERAMMONAEMIA [None]
  - LETHARGY [None]
  - NEUROTOXICITY [None]
